FAERS Safety Report 16173245 (Version 1)
Quarter: 2019Q2

REPORT INFORMATION
  Report Type: Spontaneous
  Country: US (occurrence: US)
  Receive Date: 20190408
  Receipt Date: 20190408
  Transmission Date: 20190711
  Serious: No
  Sender: FDA-Public Use
  Company Number: None

PATIENT
  Age: 30 Year
  Sex: Female
  Weight: 65.25 kg

DRUGS (10)
  1. AZO CRANBERRY [Concomitant]
     Active Substance: DIETARY SUPPLEMENT
  2. PHILIPS COLON HEALTH [Concomitant]
  3. CAMRESELO BIRTH CONTROL [Concomitant]
  4. BENEFIBER [Concomitant]
     Active Substance: STARCH, WHEAT
  5. LEXAPRO [Concomitant]
     Active Substance: ESCITALOPRAM OXALATE
  6. UNISOM SLEEPTABS [Concomitant]
     Active Substance: DOXYLAMINE SUCCINATE
  7. B12 SUPPLEMENT [Concomitant]
  8. WOMEN^S ONE-A-DAY [Concomitant]
  9. ENSKYCE [Suspect]
     Active Substance: DESOGESTREL\ETHINYL ESTRADIOL
     Indication: ENDOMETRIOSIS
     Dosage: ?          QUANTITY:1 TABLET(S);?
     Route: 048
     Dates: start: 20190321, end: 20190328
  10. GENERIC ZANTAC [Concomitant]

REACTIONS (1)
  - Depression [None]

NARRATIVE: CASE EVENT DATE: 20190328
